FAERS Safety Report 4594740-1 (Version None)
Quarter: 2005Q1

REPORT INFORMATION
  Report Type: 
  Country: None (occurrence: None)
  Receive Date: 20050224
  Receipt Date: 20050215
  Transmission Date: 20050727
  Serious: Yes (Disabling)
  Sender: FDA-Public Use
  Company Number: TAP2004Q01634

PATIENT
  Age: 49 Year
  Sex: Female
  Weight: 79.3795 kg

DRUGS (5)
  1. LUPRON DEPOT-3 [Suspect]
     Indication: UTERINE LEIOMYOMA
     Dosage: 11.25 MG, 1 IN 3 M, INTRAMUSCULAR
     Route: 030
     Dates: start: 20010327, end: 20010720
  2. ALPHAGEN (BRIMONIDINE TARTRATE) [Concomitant]
  3. BETIMOL (TIMOLOL) [Concomitant]
  4. COSOPT (COSOPT) [Concomitant]
  5. LUMIGAN [Concomitant]

REACTIONS (6)
  - CATARACT OPERATION [None]
  - DIABETES MELLITUS INADEQUATE CONTROL [None]
  - DIABETES MELLITUS NON-INSULIN-DEPENDENT [None]
  - GLARE [None]
  - POST PROCEDURAL COMPLICATION [None]
  - VISUAL ACUITY REDUCED [None]
